FAERS Safety Report 17965052 (Version 3)
Quarter: 2020Q3

REPORT INFORMATION
  Report Type: Spontaneous
  Country: DE (occurrence: DE)
  Receive Date: 20200630
  Receipt Date: 20200706
  Transmission Date: 20201103
  Serious: Yes (Other)
  Sender: FDA-Public Use
  Company Number: NVSC2020DE168091

PATIENT
  Age: 12 Year
  Sex: Male

DRUGS (4)
  1. PRIORIX [Suspect]
     Active Substance: MEASLES-MUMPS-RUBELLA VIRUS VACCINE
     Indication: IMMUNISATION
     Dosage: UNK
     Route: 065
     Dates: start: 201605
  2. PRIORIX [Suspect]
     Active Substance: MEASLES-MUMPS-RUBELLA VIRUS VACCINE
     Dosage: UNK
     Route: 065
     Dates: start: 201703
  3. IMATINIB. [Suspect]
     Active Substance: IMATINIB MESYLATE
     Indication: CHRONIC MYELOID LEUKAEMIA
     Dosage: INTERRUPT THE TREATMENT FOR A TOTAL OF 3 WEEKS PRIOR AND POST?VACCINATION
     Route: 065
  4. IMATINIB. [Suspect]
     Active Substance: IMATINIB MESYLATE
     Dosage: 400 MG, DOSE INCREASED
     Route: 065
     Dates: start: 201807

REACTIONS (2)
  - Vaccination failure [Unknown]
  - Seroconversion test negative [Recovered/Resolved]
